FAERS Safety Report 25744205 (Version 9)
Quarter: 2025Q4

REPORT INFORMATION
  Report Type: Spontaneous
  Country: US (occurrence: US)
  Receive Date: 20250901
  Receipt Date: 20251215
  Transmission Date: 20260117
  Serious: No
  Sender: ASTELLAS
  Company Number: US-ASTELLAS-2025-AER-047362

PATIENT
  Age: 56 Year
  Sex: Female
  Weight: 69 kg

DRUGS (8)
  1. PADCEV [Suspect]
     Active Substance: ENFORTUMAB VEDOTIN-EJFV
     Indication: Product used for unknown indication
     Dosage: 1.05 MG/KG
     Route: 042
     Dates: start: 20250826
  2. PADCEV [Suspect]
     Active Substance: ENFORTUMAB VEDOTIN-EJFV
     Dosage: 1.05 MG/KG
     Route: 042
     Dates: start: 20250903
  3. PADCEV [Suspect]
     Active Substance: ENFORTUMAB VEDOTIN-EJFV
     Dosage: 0.438 MG/ KG
     Route: 042
     Dates: start: 20251023
  4. PADCEV [Suspect]
     Active Substance: ENFORTUMAB VEDOTIN-EJFV
     Dosage: 0.4412 MG/ KG
     Route: 042
     Dates: start: 20251030
  5. PADCEV [Suspect]
     Active Substance: ENFORTUMAB VEDOTIN-EJFV
     Dosage: 0.44MG/KG AND INTERVAL WAS 14 DAYS PER THE PRESCRIPTION
     Route: 042
     Dates: start: 20251112
  6. PADCEV [Suspect]
     Active Substance: ENFORTUMAB VEDOTIN-EJFV
     Route: 042
     Dates: start: 20251118
  7. PADCEV [Suspect]
     Active Substance: ENFORTUMAB VEDOTIN-EJFV
     Dosage: DAY 1
     Route: 042
     Dates: start: 20251125
  8. PADCEV [Suspect]
     Active Substance: ENFORTUMAB VEDOTIN-EJFV
     Dosage: 20 MG
     Route: 042
     Dates: start: 20251210

REACTIONS (2)
  - Off label use [Unknown]
  - Off label use [Unknown]

NARRATIVE: CASE EVENT DATE: 20250826
